FAERS Safety Report 24993738 (Version 2)
Quarter: 2025Q2

REPORT INFORMATION
  Report Type: Spontaneous
  Country: CA (occurrence: None)
  Receive Date: 20250221
  Receipt Date: 20250430
  Transmission Date: 20250716
  Serious: Yes (Other)
  Sender: ORION
  Company Number: CA-PFIZER INC-202500036934

PATIENT
  Age: 46 Year
  Sex: Male

DRUGS (6)
  1. METHOTREXATE [Suspect]
     Active Substance: METHOTREXATE
     Indication: Uveitis
     Dates: start: 2021, end: 2021
  2. IDACIO [Suspect]
     Active Substance: ADALIMUMAB-AACF
     Indication: Uveitis
     Dates: start: 2022, end: 2024
  3. AZATHIOPRINE [Concomitant]
     Active Substance: AZATHIOPRINE
  4. COMBIGAN [Concomitant]
     Active Substance: BRIMONIDINE TARTRATE\TIMOLOL MALEATE
  5. PREDNISONE [Concomitant]
     Active Substance: PREDNISONE
     Dosage: 4 DROP PER DAY, AS NEEDED THEN TAPER TO 3, 2, 1 OVER THE NEXT 4 WEEKS
  6. VALTREX [Concomitant]
     Active Substance: VALACYCLOVIR HYDROCHLORIDE

REACTIONS (3)
  - Uveitis [Unknown]
  - Product use in unapproved indication [Unknown]
  - Drug ineffective for unapproved indication [Unknown]

NARRATIVE: CASE EVENT DATE: 20210101
